FAERS Safety Report 10133792 (Version 1)
Quarter: 2014Q2

REPORT INFORMATION
  Report Type: Spontaneous
  Country: BR (occurrence: BR)
  Receive Date: 20140428
  Receipt Date: 20140428
  Transmission Date: 20141212
  Serious: Yes (Hospitalization, Other)
  Sender: FDA-Public Use
  Company Number: BR-DSJP-DSJ-2014-106223

PATIENT
  Sex: 0

DRUGS (3)
  1. BENICAR ANLO [Suspect]
     Indication: HYPERTENSION
     Dosage: 40/10 MG, QD
     Route: 048
     Dates: start: 2005, end: 2010
  2. CLONAZEPAM NORTHIA [Concomitant]
     Dosage: UNK
     Route: 065
  3. SERTRALINE [Concomitant]
     Dosage: UNK
     Route: 065

REACTIONS (4)
  - Prostate cancer [Recovered/Resolved]
  - Nosocomial infection [Recovered/Resolved]
  - Urethral stenosis [Recovered/Resolved]
  - Blood pressure increased [Not Recovered/Not Resolved]
